FAERS Safety Report 9735574 (Version 2)
Quarter: 2013Q4

REPORT INFORMATION
  Report Type: Spontaneous
  Country: US (occurrence: US)
  Receive Date: 20131206
  Receipt Date: 20131206
  Transmission Date: 20140711
  Serious: No
  Sender: FDA-Public Use
  Company Number: US-GILEAD-2009-0023544

PATIENT
  Age: 60 Year
  Sex: Female
  Weight: 50.8 kg

DRUGS (13)
  1. LETAIRIS [Suspect]
     Indication: PULMONARY ARTERIAL HYPERTENSION
     Route: 048
     Dates: start: 20090515, end: 20090810
  2. LETAIRIS [Suspect]
     Route: 048
     Dates: start: 20090401, end: 20090514
  3. WARFARIN [Concomitant]
  4. LISINOPRIL [Concomitant]
  5. NORVASC [Concomitant]
  6. ALDACTONE [Concomitant]
  7. LASIX [Concomitant]
  8. TRENTAL [Concomitant]
  9. NEXIUM [Concomitant]
  10. TYLENOL [Concomitant]
  11. TRAMADOL [Concomitant]
  12. POTASSIUM CHLORIDE [Concomitant]
  13. NIACIN [Concomitant]

REACTIONS (4)
  - Blood alkaline phosphatase increased [Recovering/Resolving]
  - Blood bilirubin increased [Recovering/Resolving]
  - Aspartate aminotransferase increased [Recovering/Resolving]
  - Alanine aminotransferase increased [Recovering/Resolving]
